FAERS Safety Report 5483938-6 (Version None)
Quarter: 2007Q4

REPORT INFORMATION
  Report Type: 
  Country: None (occurrence: None)
  Receive Date: 20071009
  Receipt Date: 20071009
  Transmission Date: 20080405
  Serious: Yes (Hospitalization)
  Sender: FDA-Public Use
  Company Number: None

PATIENT
  Sex: Female
  Weight: 77.1115 kg

DRUGS (1)
  1. MYSOLINE [Suspect]
     Dosage: 50 BID PO
     Route: 048

REACTIONS (1)
  - NO ADVERSE REACTION [None]
